FAERS Safety Report 4810914-6 (Version None)
Quarter: 2005Q4

REPORT INFORMATION
  Report Type: 
  Country: None (occurrence: None)
  Receive Date: 20051027
  Receipt Date: 20051017
  Transmission Date: 20060501
  Serious: Yes (Other)
  Sender: FDA-Public Use
  Company Number: US-SOLVAY-00205003278

PATIENT
  Age: 15616 Day
  Sex: Female
  Weight: 68 kg

DRUGS (3)
  1. ANDROGEL [Suspect]
     Indication: LIBIDO DECREASED
     Dosage: DAILY DOSE: 1.25 GRAM(S) VIA PUMP
     Route: 062
     Dates: start: 20050613, end: 20050618
  2. DEPAKOTE [Concomitant]
     Indication: CONVULSION
     Dosage: DAILY DOSE:  UNKNOWN
     Route: 048
  3. DECADRON [Concomitant]
     Indication: BRAIN OEDEMA
     Dosage: DAILY DOSE:  UNKNOWN
     Route: 048

REACTIONS (2)
  - DRUG INEFFECTIVE [None]
  - METASTASES TO CENTRAL NERVOUS SYSTEM [None]
